FAERS Safety Report 15378027 (Version 1)
Quarter: 2018Q3

REPORT INFORMATION
  Report Type: Spontaneous
  Country: CN (occurrence: CN)
  Receive Date: 20180913
  Receipt Date: 20180913
  Transmission Date: 20181010
  Serious: Yes (Other)
  Sender: FDA-Public Use
  Company Number: CN-PFIZER INC-2018365655

PATIENT

DRUGS (1)
  1. LIPITOR [Suspect]
     Active Substance: ATORVASTATIN CALCIUM
     Dosage: 40 MG, UNK
     Route: 048

REACTIONS (3)
  - Aspartate aminotransferase increased [Recovered/Resolved]
  - Coagulation time prolonged [Recovered/Resolved]
  - Gamma-glutamyltransferase increased [Recovering/Resolving]
